FAERS Safety Report 7548992-6 (Version None)
Quarter: 2011Q2

REPORT INFORMATION
  Report Type: 
  Country: None (occurrence: None)
  Receive Date: 20110615
  Receipt Date: 20110608
  Transmission Date: 20111010
  Serious: Yes (Hospitalization)
  Sender: FDA-Public Use
  Company Number: JP-PFIZER INC-2011078530

PATIENT
  Age: 72 Year
  Sex: Male
  Weight: 61 kg

DRUGS (3)
  1. TAGAMET DUAL ACTION [Concomitant]
     Dosage: 200 MG, 2X/DAY
     Route: 048
     Dates: start: 20090530
  2. SUNITINIB MALATE [Suspect]
     Indication: RENAL CELL CARCINOMA
     Dosage: 25 MG, 1X/DAY
     Route: 048
     Dates: start: 20090530, end: 20110323
  3. CARBAMAZEPINE [Concomitant]
     Dosage: 200 MG, 1X/DAY
     Route: 048

REACTIONS (1)
  - LACUNAR INFARCTION [None]
